FAERS Safety Report 7669487-5 (Version None)
Quarter: 2011Q3

REPORT INFORMATION
  Report Type: 
  Country: None (occurrence: None)
  Receive Date: 20110808
  Receipt Date: 20110801
  Transmission Date: 20111222
  Serious: Yes (Life-Threatening, Hospitalization, Disabling)
  Sender: FDA-Public Use
  Company Number: US-MERCK-1108USA00306

PATIENT
  Age: 83 Year
  Sex: Male

DRUGS (2)
  1. COUMADIN [Concomitant]
     Route: 065
  2. INVANZ [Suspect]
     Indication: URINARY TRACT INFECTION
     Route: 042
     Dates: start: 20110722, end: 20110726

REACTIONS (17)
  - AGITATION [None]
  - DEPRESSION [None]
  - DROOLING [None]
  - CONFUSIONAL STATE [None]
  - TREMOR [None]
  - DISORIENTATION [None]
  - FINE MOTOR DELAY [None]
  - ABNORMAL BEHAVIOUR [None]
  - INSOMNIA [None]
  - CEREBRAL ISCHAEMIA [None]
  - AGGRESSION [None]
  - HALLUCINATION [None]
  - SOMNOLENCE [None]
  - CEREBRAL ATROPHY [None]
  - GAIT DISTURBANCE [None]
  - FEAR [None]
  - FALL [None]
